FAERS Safety Report 10386485 (Version 1)
Quarter: 2014Q3

REPORT INFORMATION
  Report Type: Report from Study
  Country: US (occurrence: US)
  Receive Date: 20140815
  Receipt Date: 20140815
  Transmission Date: 20150326
  Serious: Yes (Life-Threatening)
  Sender: FDA-Public Use
  Company Number: US-009507513-1408USA002239

PATIENT

DRUGS (6)
  1. INTRON A [Suspect]
     Active Substance: INTERFERON ALFA-2B
     Indication: METASTATIC MALIGNANT MELANOMA
     Dosage: 5X10^6 IU/M2, DAYS 1-5
     Route: 058
  2. PACLITAXEL ALBUMIN [Suspect]
     Active Substance: PACLITAXEL
     Dosage: 70 MG/M2, DAY 5
     Route: 042
  3. CISPLATIN. [Suspect]
     Active Substance: CISPLATIN
     Indication: METASTATIC MALIGNANT MELANOMA
     Dosage: 20 MG/M2, DAYS 1-4
     Route: 042
  4. RECOMBINANT HUMAN INTERLEUKIN-2 (125ALA) [Concomitant]
     Active Substance: ALDESLEUKIN
     Indication: METASTATIC MALIGNANT MELANOMA
     Dosage: 9X10^6 IU/M2 FOR 96H ON DAYS 1-4
     Route: 058
  5. TEMODAR [Suspect]
     Active Substance: TEMOZOLOMIDE
     Indication: METASTATIC MALIGNANT MELANOMA
     Dosage: 250 MG/M2, DAYS 1-3
     Route: 048
  6. PACLITAXEL ALBUMIN [Suspect]
     Active Substance: PACLITAXEL
     Indication: METASTATIC MALIGNANT MELANOMA
     Dosage: 80 OR 100 OR 120 OR 140 MG/M2, DAY 1
     Route: 042

REACTIONS (1)
  - Neutropenia [Unknown]
